FAERS Safety Report 4274648-1 (Version None)
Quarter: 2004Q1

REPORT INFORMATION
  Report Type: 
  Country: None (occurrence: None)
  Receive Date: 20040120
  Receipt Date: 20040112
  Transmission Date: 20041129
  Serious: Yes (Hospitalization)
  Sender: FDA-Public Use
  Company Number: PHFR2004GB00566

PATIENT
  Age: 4 Year
  Sex: Female

DRUGS (2)
  1. BACLOFEN [Suspect]
     Indication: MUSCLE SPASTICITY
     Dosage: 6 MG, QID
     Route: 048
     Dates: start: 20000601, end: 20031227
  2. MELATONIN [Concomitant]
     Indication: INSOMNIA
     Dosage: 6M/DAY
     Route: 048
     Dates: start: 20011101

REACTIONS (2)
  - BRADYCARDIA [None]
  - HYPOTHERMIA [None]
